FAERS Safety Report 7308986-2 (Version None)
Quarter: 2011Q1

REPORT INFORMATION
  Report Type: 
  Country: None (occurrence: None)
  Receive Date: 20110223
  Receipt Date: 20110216
  Transmission Date: 20110831
  Serious: Yes (Other)
  Sender: FDA-Public Use
  Company Number: CHNY2010JP00541

PATIENT
  Age: 68 Year
  Sex: Female

DRUGS (1)
  1. PURSENNID [Suspect]
     Indication: CONSTIPATION
     Route: 048

REACTIONS (2)
  - ERYTHEMA MULTIFORME [None]
  - RASH [None]
